FAERS Safety Report 10006631 (Version 2)
Quarter: 2014Q1

REPORT INFORMATION
  Report Type: Spontaneous
  Country: US (occurrence: US)
  Receive Date: 20140313
  Receipt Date: 20140313
  Transmission Date: 20141002
  Serious: No
  Sender: FDA-Public Use
  Company Number: US-PFIZER INC-2014047540

PATIENT
  Age: 63 Year
  Sex: Female
  Weight: 44.44 kg

DRUGS (10)
  1. REVATIO [Suspect]
     Indication: PULMONARY ARTERIAL HYPERTENSION
     Dosage: 2 DF, 3X/DAY
     Route: 048
     Dates: start: 200807, end: 20140128
  2. REVATIO [Suspect]
     Dosage: 20 MG, 3X/DAY
     Dates: start: 20100202
  3. CARDIZEM CD [Concomitant]
     Dosage: 180 MG, 1X/DAY
  4. CELLCEPT [Concomitant]
     Dosage: 500 MG, 2X/DAY
  5. DIOVAN [Concomitant]
     Dosage: 160 MG, 2X/DAY
  6. LETAIRIS [Concomitant]
     Dosage: 5 MG, 1X/DAY
  7. PREDNISONE [Concomitant]
     Dosage: 1 MG, 3X/DAY
  8. PROVENTIL HFA [Concomitant]
     Dosage: 108 (90 BASE) MCG/ACT 2 PUFFS, AS NEEDED (Q4 HRS PRN)
  9. RESTASIS [Concomitant]
     Dosage: 1 GTT, AS NEEDED (ONE DROP EACH EYE)
     Route: 047
  10. INFLUENZA [Concomitant]
     Dosage: 1 DF, SINGLE
     Dates: start: 20130915, end: 20130915

REACTIONS (5)
  - Bronchitis [Unknown]
  - Cough [Unknown]
  - Nasal congestion [Unknown]
  - Paranasal sinus hypersecretion [Unknown]
  - Weight decreased [Unknown]
